FAERS Safety Report 15008058 (Version 1)
Quarter: 2018Q2

REPORT INFORMATION
  Report Type: Spontaneous
  Country: US (occurrence: US)
  Receive Date: 20180613
  Receipt Date: 20180613
  Transmission Date: 20180711
  Serious: No
  Sender: FDA-Public Use
  Company Number: US-GALDERMA-US18009675

PATIENT
  Age: 13 Year
  Sex: Male

DRUGS (4)
  1. PROACTIV MD ADAPALENE ACNE TREATMENT [Suspect]
     Active Substance: ADAPALENE
     Indication: ACNE
     Dosage: 0.1%
     Route: 061
     Dates: start: 20180224, end: 20180302
  2. PROACTIV BLACKHEAD DISSOLVING [Concomitant]
     Active Substance: SALICYLIC ACID
     Route: 061
     Dates: start: 20180224, end: 20180302
  3. PROACTIV SOLUTION DAILY PROTECTION PLUS SUNSCREEN SPF 30 [Suspect]
     Active Substance: AVOBENZONE\HOMOSALATE\OCTINOXATE\OCTISALATE\OXYBENZONE
     Indication: ACNE
     Route: 061
     Dates: start: 20180224, end: 20180302
  4. PROACTIV MD DEEP CLEANSING FACE WASH [Concomitant]
     Active Substance: COSMETICS
     Route: 061
     Dates: start: 20180224, end: 20180302

REACTIONS (4)
  - Rash [Not Recovered/Not Resolved]
  - Dry skin [Not Recovered/Not Resolved]
  - Swelling face [Not Recovered/Not Resolved]
  - Thermal burn [Not Recovered/Not Resolved]

NARRATIVE: CASE EVENT DATE: 20180226
